FAERS Safety Report 5917952-0 (Version None)
Quarter: 2008Q4

REPORT INFORMATION
  Report Type: 
  Country: None (occurrence: None)
  Receive Date: 20081014
  Receipt Date: 20081007
  Transmission Date: 20090506
  Serious: Yes (Death, Hospitalization, Other)
  Sender: FDA-Public Use
  Company Number: BR-ABBOTT-08P-020-0477449-00

PATIENT
  Sex: Female

DRUGS (10)
  1. HUMIRA [Suspect]
     Indication: RHEUMATOID ARTHRITIS
     Route: 058
     Dates: start: 20060401, end: 20080701
  2. NIMESULIDE [Concomitant]
     Indication: ANTIINFLAMMATORY THERAPY
     Dates: end: 20071101
  3. PREDNISONE [Concomitant]
     Indication: DRUG USE FOR UNKNOWN INDICATION
  4. METHOTREXATE [Concomitant]
     Indication: RHEUMATOID ARTHRITIS
  5. ANTIHYPERTENSIVES [Concomitant]
     Indication: HYPERTENSION
  6. ACETAMINOPHEN [Concomitant]
     Indication: ANTIINFLAMMATORY THERAPY
  7. CHLOROQUINE PHOSPHATE [Concomitant]
     Indication: DRUG USE FOR UNKNOWN INDICATION
  8. TIMOLOL [Concomitant]
     Indication: DRUG USE FOR UNKNOWN INDICATION
  9. UNSPECIFIED MEDICATION [Concomitant]
     Indication: SLEEP DISORDER THERAPY
  10. DIPYRONE TAB [Concomitant]
     Indication: ANTIINFLAMMATORY THERAPY

REACTIONS (19)
  - ACUTE ABDOMEN [None]
  - ANAEMIA [None]
  - BLADDER DISTENSION [None]
  - BLOOD GLUCOSE ABNORMAL [None]
  - COLON NEOPLASM [None]
  - CYST [None]
  - GASTROINTESTINAL NECROSIS [None]
  - INFLUENZA [None]
  - LUNG DISORDER [None]
  - LUNG NEOPLASM [None]
  - PLEURAL EFFUSION [None]
  - PNEUMONIA [None]
  - PYREXIA [None]
  - RENAL DISORDER [None]
  - RESPIRATORY ARREST [None]
  - RHEUMATOID ARTHRITIS [None]
  - SEPSIS [None]
  - SNEEZING [None]
  - URINARY TRACT INFECTION [None]
